FAERS Safety Report 8767857 (Version 2)
Quarter: 2013Q4

REPORT INFORMATION
  Report Type: Spontaneous
  Country: US (occurrence: US)
  Receive Date: 20120904
  Receipt Date: 20131101
  Transmission Date: 20140711
  Serious: No
  Sender: FDA-Public Use
  Company Number: US-009507513-1209USA000385

PATIENT
  Sex: Male

DRUGS (14)
  1. VICTRELIS [Suspect]
     Indication: HEPATITIS C
     Dosage: 4 DF, Q8H
     Route: 048
  2. RIBASPHERE [Suspect]
  3. PEGASYS [Suspect]
  4. CENTRUM (MINERALS (UNSPECIFIED) (+) VITAMINS (UNSPECIFIED)) [Concomitant]
  5. PROGRAF [Concomitant]
  6. VITAMIN B (UNSPECIFIED) [Concomitant]
  7. MILK THISTLE [Concomitant]
  8. CALCIUM (UNSPECIFIED) [Concomitant]
  9. CHOLECALCIFEROL [Concomitant]
  10. ZOLOFT [Concomitant]
  11. METHADONE HYDROCHLORIDE [Concomitant]
  12. NOVOLOG [Concomitant]
  13. HYDROCODONE [Concomitant]
  14. LEVOXYL [Concomitant]

REACTIONS (3)
  - Nausea [Unknown]
  - Vomiting [Unknown]
  - Fatigue [Unknown]
